FAERS Safety Report 13554963 (Version 1)
Quarter: 2017Q2

REPORT INFORMATION
  Report Type: Spontaneous
  Country: FR (occurrence: FR)
  Receive Date: 20170517
  Receipt Date: 20170517
  Transmission Date: 20170830
  Serious: Yes (Other)
  Sender: FDA-Public Use
  Company Number: FR-ASTRAZENECA-2017SE51305

PATIENT
  Sex: Female

DRUGS (1)
  1. FASLODEX [Suspect]
     Active Substance: FULVESTRANT
     Indication: BREAST CANCER FEMALE
     Dosage: 250 MG, 1 INJECTION IN EACH BUTTOCK
     Route: 030

REACTIONS (2)
  - Musculoskeletal pain [Not Recovered/Not Resolved]
  - Paralysis [Not Recovered/Not Resolved]
